FAERS Safety Report 11726961 (Version 1)
Quarter: 2015Q4

REPORT INFORMATION
  Report Type: Spontaneous
  Country: US (occurrence: US)
  Receive Date: 20151112
  Receipt Date: 20151112
  Transmission Date: 20160304
  Serious: Yes (Hospitalization, Other)
  Sender: FDA-Public Use
  Company Number: US-AMGEN-USASP2015117585

PATIENT
  Age: 67 Year
  Sex: Male

DRUGS (2)
  1. ENBREL [Suspect]
     Active Substance: ETANERCEPT
     Indication: PSORIASIS
     Dosage: 50 MG, QWK
     Route: 065
  2. ENBREL [Suspect]
     Active Substance: ETANERCEPT
     Indication: PSORIATIC ARTHROPATHY

REACTIONS (5)
  - Pulmonary oedema [Unknown]
  - Pericardial effusion [Unknown]
  - Cardiac failure congestive [Recovered/Resolved]
  - Therapeutic response decreased [Not Recovered/Not Resolved]
  - Gouty arthritis [Unknown]

NARRATIVE: CASE EVENT DATE: 2015
